FAERS Safety Report 9990630 (Version 1)
Quarter: 2014Q1

REPORT INFORMATION
  Report Type: Spontaneous
  Country: US (occurrence: None)
  Receive Date: 20140307
  Receipt Date: 20140307
  Transmission Date: 20141002
  Serious: Yes (Other)
  Sender: FDA-Public Use
  Company Number: None

PATIENT
  Age: 40 Year
  Sex: Male

DRUGS (1)
  1. PHENYTOIN GENERIC 100MG [Suspect]
     Indication: CONVULSION
     Route: 048
     Dates: start: 2006

REACTIONS (5)
  - Convulsion [None]
  - Product substitution issue [None]
  - Therapeutic response unexpected with drug substitution [None]
  - Condition aggravated [None]
  - Road traffic accident [None]
